FAERS Safety Report 4586002-3 (Version None)
Quarter: 2005Q1

REPORT INFORMATION
  Report Type: 
  Country: None (occurrence: None)
  Receive Date: 20050125
  Receipt Date: 20040823
  Transmission Date: 20050727
  Serious: No
  Sender: FDA-Public Use
  Company Number: USA040669312

PATIENT
  Age: 86 Year
  Sex: Female
  Weight: 45 kg

DRUGS (9)
  1. FORTEO [Suspect]
     Indication: OSTEOPOROSIS
     Dosage: 20 UG/1 DAY
     Dates: start: 20040427, end: 20040819
  2. COUMADIN [Concomitant]
  3. SODIUM CHLORIDE 0.9% [Concomitant]
  4. DIGOXIN [Concomitant]
  5. SOTALOL HCL [Concomitant]
  6. DEXTRO (DEXTROMETHORPHAN HYDROBROMIDE) [Concomitant]
  7. CALTRATE 600 PLUS VITAMIN D [Concomitant]
  8. FOSAMAX [Concomitant]
  9. ENULOSE [Concomitant]

REACTIONS (7)
  - CONSTIPATION [None]
  - DIZZINESS [None]
  - INJECTION SITE IRRITATION [None]
  - INJECTION SITE PAIN [None]
  - INSOMNIA [None]
  - MEDICATION ERROR [None]
  - NAUSEA [None]
